FAERS Safety Report 8105897-X (Version None)
Quarter: 2012Q1

REPORT INFORMATION
  Report Type: 
  Country: None (occurrence: None)
  Receive Date: 20120202
  Receipt Date: 20120125
  Transmission Date: 20120608
  Serious: No
  Sender: FDA-Public Use
  Company Number: US-BIOGENIDEC-2012BI000772

PATIENT
  Sex: Male

DRUGS (3)
  1. AVONEX [Concomitant]
     Route: 030
     Dates: start: 20031226
  2. AVONEX [Concomitant]
     Indication: MULTIPLE SCLEROSIS
     Route: 030
  3. TYSABRI [Suspect]
     Indication: MULTIPLE SCLEROSIS
     Route: 042
     Dates: start: 20070905

REACTIONS (7)
  - SOMNOLENCE [None]
  - HYPOAESTHESIA [None]
  - FOOT OPERATION [None]
  - FRUSTRATION [None]
  - DEPRESSED MOOD [None]
  - TREMOR [None]
  - SINUSITIS [None]
